FAERS Safety Report 9325113 (Version 1)
Quarter: 2013Q2

REPORT INFORMATION
  Report Type: Spontaneous
  Country: US (occurrence: None)
  Receive Date: 20130529
  Receipt Date: 20130529
  Transmission Date: 20140414
  Serious: Yes (Other)
  Sender: FDA-Public Use
  Company Number: 2013P1006044

PATIENT
  Age: 58 Year
  Sex: Female
  Weight: 41.73 kg

DRUGS (9)
  1. FENTANYL [Suspect]
     Indication: POST LAMINECTOMY SYNDROME
     Dates: start: 2004
  2. FENTANYL [Suspect]
     Indication: SPINAL PAIN
     Dates: start: 2004
  3. FENTANYL [Suspect]
     Dates: start: 2004
  4. INFUMORPH [Suspect]
     Indication: SPINAL PAIN
     Route: 037
     Dates: start: 20040519, end: 2004
  5. INFUMORPH [Suspect]
     Indication: POST LAMINECTOMY SYNDROME
     Route: 037
     Dates: start: 20040519, end: 2004
  6. INFUMORPH [Suspect]
     Route: 037
     Dates: start: 20040519, end: 2004
  7. BUPIVACAINE [Suspect]
     Indication: POST LAMINECTOMY SYNDROME
     Route: 037
     Dates: start: 2004
  8. BUPIVACAINE [Suspect]
     Indication: SPINAL PAIN
     Route: 037
     Dates: start: 2004
  9. FENTANYL PATCH [Suspect]
     Route: 061

REACTIONS (13)
  - Implant site effusion [None]
  - Drug ineffective [None]
  - Pain [None]
  - Pruritus [None]
  - Rash [None]
  - Haemorrhage [None]
  - Urticaria [None]
  - Overdose [None]
  - Granuloma [None]
  - Catheter site related reaction [None]
  - Device dislocation [None]
  - Drug dependence [None]
  - Drug tolerance [None]
